FAERS Safety Report 9331750 (Version 2)
Quarter: 2013Q2

REPORT INFORMATION
  Report Type: Spontaneous
  Country: US (occurrence: None)
  Receive Date: 20130603
  Receipt Date: 20130605
  Transmission Date: 20140414
  Serious: Yes (Other)
  Sender: FDA-Public Use
  Company Number: US-002048

PATIENT
  Age: 32 Year
  Sex: Female

DRUGS (3)
  1. MENOPUR [Suspect]
     Indication: INFERTILITY
  2. OVIDREL [Suspect]
     Indication: OVARIAN HYPERSTIMULATION SYNDROME
  3. GONAL-F [Suspect]
     Indication: INFERTILITY
     Dosage: 150 IU 26OCT2009 TO ONGOING (AT THE TIME OF THE EVENT)
     Dates: start: 20091026

REACTIONS (2)
  - Abortion spontaneous [None]
  - Exposure during pregnancy [None]
